FAERS Safety Report 8322703-9 (Version None)
Quarter: 2012Q2

REPORT INFORMATION
  Report Type: 
  Country: None (occurrence: None)
  Receive Date: 20120427
  Receipt Date: 20120412
  Transmission Date: 20120825
  Serious: Yes (Life-Threatening, Other)
  Sender: FDA-Public Use
  Company Number: 1255782

PATIENT
  Age: 40 Year
  Sex: Male
  Weight: 86.6 kg

DRUGS (3)
  1. CYCLOPHOSPHAMIDE [Suspect]
     Indication: CHRONIC LYMPHOCYTIC LEUKAEMIA
     Dosage: 600 MG/M2, ON DAY 1 CYCLES 1-6
     Route: 042
     Dates: start: 20111003, end: 20120123
  2. (RITUXIMAB) [Suspect]
     Indication: CHRONIC LYMPHOCYTIC LEUKAEMIA
     Dosage: 100 MG, CYCLE 1 DAY 1; 375 MG/M2, DAYS 3 AND 5, AND CYCLES 2-6 DAY 1
     Route: 042
     Dates: start: 20111003, end: 20120123
  3. PENTOSTATIN [Suspect]
     Indication: CHRONIC LYMPHOCYTIC LEUKAEMIA
     Dosage: 4 MG/M2, ON DAY 1, CYCLE 1-6
     Route: 042
     Dates: start: 20111003, end: 20120123

REACTIONS (4)
  - LYMPHOCYTE COUNT DECREASED [None]
  - HAEMATEMESIS [None]
  - NEUTROPHIL COUNT DECREASED [None]
  - UPPER RESPIRATORY TRACT INFECTION [None]
